FAERS Safety Report 16918474 (Version 5)
Quarter: 2023Q4

REPORT INFORMATION
  Report Type: Spontaneous
  Country: CA (occurrence: CA)
  Receive Date: 20191015
  Receipt Date: 20231120
  Transmission Date: 20240109
  Serious: Yes (Other)
  Sender: FDA-Public Use
  Company Number: CA-PFIZER INC-2017295866

PATIENT
  Age: 68 Year
  Sex: Male

DRUGS (7)
  1. SOMAVERT [Suspect]
     Active Substance: PEGVISOMANT
     Indication: Acromegaly
     Dosage: 30 MG, 1X/DAY
     Route: 058
     Dates: start: 2007
  2. SOMAVERT [Suspect]
     Active Substance: PEGVISOMANT
     Dosage: 20 MG, 1X/DAY
     Route: 058
  3. SOMAVERT [Suspect]
     Active Substance: PEGVISOMANT
     Dosage: 30 MG, 1X/DAY
     Route: 058
     Dates: start: 2013, end: 2019
  4. SOMAVERT [Suspect]
     Active Substance: PEGVISOMANT
     Dosage: 20 MG, 1X/DAY
     Route: 058
     Dates: start: 2019
  5. AMLODIPINE [Concomitant]
     Active Substance: AMLODIPINE BESYLATE
     Indication: Hypertension
     Dosage: UNK, DAILY
     Route: 065
     Dates: end: 2021
  6. VALSARTAN [Concomitant]
     Active Substance: VALSARTAN
     Indication: Hypertension
     Dosage: UNK
     Route: 065
     Dates: end: 2021
  7. SYNTHROID [Concomitant]
     Active Substance: LEVOTHYROXINE SODIUM
     Dosage: UNK
     Route: 065

REACTIONS (9)
  - Renal cancer [Unknown]
  - Aspartate aminotransferase increased [Unknown]
  - Alanine aminotransferase increased [Unknown]
  - Blood cholesterol increased [Unknown]
  - Hypertension [Unknown]
  - Blood growth hormone increased [Unknown]
  - Injection site haemorrhage [Not Recovered/Not Resolved]
  - Intentional product use issue [Unknown]
  - Product preparation error [Unknown]

NARRATIVE: CASE EVENT DATE: 20190702
